FAERS Safety Report 19086412 (Version 4)
Quarter: 2021Q2

REPORT INFORMATION
  Report Type: Report from Study
  Country: CA (occurrence: CA)
  Receive Date: 20210402
  Receipt Date: 20210506
  Transmission Date: 20210717
  Serious: Yes (Other)
  Sender: FDA-Public Use
  Company Number: CA-BRISTOL-MYERS SQUIBB COMPANY-BMS-2021-028903

PATIENT
  Age: 54 Year
  Sex: Female

DRUGS (1)
  1. ABATACEPT [Suspect]
     Active Substance: ABATACEPT
     Indication: RHEUMATOID ARTHRITIS
     Dosage: 1000MG, Q4WK
     Route: 042
     Dates: start: 20190222

REACTIONS (3)
  - Off label use [Unknown]
  - Papilloma viral infection [Unknown]
  - Inappropriate schedule of product administration [Unknown]
